FAERS Safety Report 24566012 (Version 1)
Quarter: 2024Q4

REPORT INFORMATION
  Report Type: Spontaneous
  Country: US (occurrence: US)
  Receive Date: 20241030
  Receipt Date: 20241030
  Transmission Date: 20250114
  Serious: No
  Sender: UNITED EXCHANGE
  Company Number: US-United Exchange Corporation-2164139

PATIENT
  Age: 36 Year
  Sex: Female

DRUGS (5)
  1. CVS MEDICATED HEAT [Suspect]
     Active Substance: CAPSICUM
     Indication: Arthritis
     Dates: start: 20240830, end: 20240830
  2. CVS MEDICATED HEAT [Suspect]
     Active Substance: CAPSICUM
     Indication: Contusion
  3. CVS MEDICATED HEAT [Suspect]
     Active Substance: CAPSICUM
     Indication: Muscle strain
  4. CVS MEDICATED HEAT [Suspect]
     Active Substance: CAPSICUM
     Indication: Ligament sprain
  5. CVS MEDICATED HEAT [Suspect]
     Active Substance: CAPSICUM
     Indication: Back pain

REACTIONS (1)
  - Skin burning sensation [Unknown]

NARRATIVE: CASE EVENT DATE: 20240830
